FAERS Safety Report 4532247-8 (Version None)
Quarter: 2004Q4

REPORT INFORMATION
  Report Type: 
  Country: None (occurrence: None)
  Receive Date: 20041220
  Receipt Date: 20041001
  Transmission Date: 20050328
  Serious: Yes (Hospitalization)
  Sender: FDA-Public Use
  Company Number: BR-ABBOTT-04P-020-0276716-00

PATIENT
  Age: 55 Year
  Sex: Male
  Weight: 70 kg

DRUGS (8)
  1. GOPTEN [Suspect]
     Indication: DRUG USE FOR UNKNOWN INDICATION
     Route: 048
     Dates: start: 20040707, end: 20041004
  2. GOPTEN [Suspect]
     Dates: start: 20041025
  3. GLIBOMET [Concomitant]
     Indication: DIABETES MELLITUS
     Dosage: 500 MG GLIABENCLAMIDE/2.5 MG METFORMIN
     Route: 048
  4. RANITIDINE [Concomitant]
     Indication: GASTRITIS
     Route: 048
  5. AMLODIPINE BESYLATE [Concomitant]
     Indication: HYPERTENSION
     Dosage: 7.5 MG DAILY WAS PRESCRIBED
     Route: 048
  6. AMLODIPINE BESYLATE [Concomitant]
     Route: 048
  7. METFORMIN HCL [Concomitant]
     Indication: DRUG USE FOR UNKNOWN INDICATION
  8. SOMALGIN [Concomitant]
     Indication: DRUG USE FOR UNKNOWN INDICATION

REACTIONS (6)
  - DIARRHOEA [None]
  - DIZZINESS [None]
  - EFFUSION [None]
  - ISCHAEMIC CEREBRAL INFARCTION [None]
  - VISION BLURRED [None]
  - VOMITING [None]
